FAERS Safety Report 14933643 (Version 2)
Quarter: 2018Q2

REPORT INFORMATION
  Report Type: Spontaneous
  Country: DE (occurrence: DE)
  Receive Date: 20180524
  Receipt Date: 20180529
  Transmission Date: 20180711
  Serious: Yes (Hospitalization)
  Sender: FDA-Public Use
  Company Number: DE-PFIZER INC-2018203745

PATIENT
  Age: 67 Year
  Sex: Female
  Weight: 74 kg

DRUGS (11)
  1. PANTOPRAZOL [Concomitant]
     Active Substance: PANTOPRAZOLE SODIUM
     Dosage: 40 MG, 1X/DAY, TABLETS
     Route: 048
  2. DEXAMETHASONE. [Concomitant]
     Active Substance: DEXAMETHASONE
     Dosage: 4 MG,  2X/ 0.5 TABLET
     Route: 048
  3. METOPROLOL. [Concomitant]
     Active Substance: METOPROLOL
     Dosage: 95 MG, 2X/DAY, TABLET
     Route: 048
  4. CALCIUM CARBONATE W/COLECALCIFEROL [Concomitant]
     Active Substance: CALCIUM CARBONATE\CHOLECALCIFEROL
     Dosage: 400/600 IU/MG, 1X/DAY, CHEWABLE TABLETS
     Route: 048
  5. LEVETIRACETAM. [Concomitant]
     Active Substance: LEVETIRACETAM
     Dosage: 500 MG, 2X/DAY, TABLET
     Route: 048
  6. CODEINE [Concomitant]
     Active Substance: CODEINE
     Dosage: 20 GTT, AS NEEDED, DROPS
     Route: 048
  7. BECLOMETASONE DIPROPIONATE W/FORMOTEROL FUMAR [Concomitant]
     Active Substance: BECLOMETHASONE\FORMOTEROL
     Dosage: 100/6 UG, 2X/DAY, DOSE INHALER
     Route: 055
  8. APIXABAN [Concomitant]
     Active Substance: APIXABAN
     Dosage: 5 MG, 2X/DAY, TABLET
     Route: 048
  9. CRIZOTINIB [Suspect]
     Active Substance: CRIZOTINIB
     Dosage: 250 MG, 2X/DAY
     Route: 048
  10. ALLOPURINOL. [Concomitant]
     Active Substance: ALLOPURINOL
     Dosage: 150 MG, 1/2 300 MG TABLET 1X/DAY
     Route: 048
  11. TORASEMID [Concomitant]
     Active Substance: TORSEMIDE
     Dosage: 10 MG, 1X/DAY, TABLET
     Route: 048

REACTIONS (5)
  - Dysphagia [Unknown]
  - Nausea [Unknown]
  - Hyperglycaemia [Unknown]
  - General physical health deterioration [Unknown]
  - Oral candidiasis [Unknown]
